FAERS Safety Report 17164754 (Version 1)
Quarter: 2019Q4

REPORT INFORMATION
  Report Type: Report from Study
  Country: US (occurrence: US)
  Receive Date: 20191217
  Receipt Date: 20191217
  Transmission Date: 20200122
  Serious: Yes (Other)
  Sender: FDA-Public Use
  Company Number: US-UCBSA-2019053126

PATIENT
  Sex: Female
  Weight: 63.5 kg

DRUGS (9)
  1. LEVETIRACETAM. [Suspect]
     Active Substance: LEVETIRACETAM
     Indication: SEIZURE
     Dosage: 500 MILLIGRAM, 2X/DAY (BID)
     Route: 048
  2. GABAPENTIN. [Concomitant]
     Active Substance: GABAPENTIN
     Indication: EPILEPSY
  3. VITAMIN B12 [COBAMAMIDE] [Concomitant]
     Indication: PRODUCT USED FOR UNKNOWN INDICATION
  4. AMBEREN [Concomitant]
     Indication: PRODUCT USED FOR UNKNOWN INDICATION
  5. CAFFEINE. [Concomitant]
     Active Substance: CAFFEINE
  6. BRIVIACT [Suspect]
     Active Substance: BRIVARACETAM
     Indication: PRODUCT USED FOR UNKNOWN INDICATION
     Dosage: 50 MILLIGRAM, 2X/DAY (BID)
     Route: 048
  7. VIMPAT [Suspect]
     Active Substance: LACOSAMIDE
     Indication: PRODUCT USED FOR UNKNOWN INDICATION
     Dosage: 200 MILLIGRAM, 2X/DAY (BID)
     Route: 048
  8. MULTIVITAMIN N [AMINOBENZOIC ACID;ASCORBIC ACID;BETAINE HYDROCHLORIDE; [Concomitant]
     Indication: PRODUCT USED FOR UNKNOWN INDICATION
  9. VITAMIN C [Concomitant]
     Active Substance: ASCORBIC ACID
     Indication: PRODUCT USED FOR UNKNOWN INDICATION

REACTIONS (15)
  - Decreased appetite [Unknown]
  - Hypoglycaemia [Unknown]
  - Paraesthesia [Unknown]
  - Vomiting [Unknown]
  - Back pain [Unknown]
  - Amnesia [Unknown]
  - Nausea [Unknown]
  - Fatigue [Unknown]
  - Areflexia [Unknown]
  - Chills [Unknown]
  - Anxiety [Unknown]
  - Product dose omission [Unknown]
  - Joint stiffness [Unknown]
  - Gait disturbance [Unknown]
  - Seizure [Unknown]
